FAERS Safety Report 16458813 (Version 1)
Quarter: 2019Q2

REPORT INFORMATION
  Report Type: Spontaneous
  Country: US (occurrence: US)
  Receive Date: 20190620
  Receipt Date: 20190620
  Transmission Date: 20190711
  Serious: No
  Sender: FDA-Public Use
  Company Number: US-THERAPEUTICSMD-2019TMD00844

PATIENT
  Age: 81 Year
  Sex: Female
  Weight: 70.75 kg

DRUGS (4)
  1. IMVEXXY [Suspect]
     Active Substance: ESTRADIOL
     Dosage: 10 ?G, 2X/WEEK FIRST THING IN THE MORNING
     Route: 067
     Dates: start: 201904
  2. LIPITOR [Concomitant]
     Active Substance: ATORVASTATIN CALCIUM
  3. LOVAZA [Concomitant]
     Active Substance: OMEGA-3-ACID ETHYL ESTERS
  4. IMVEXXY [Suspect]
     Active Substance: ESTRADIOL
     Indication: VAGINAL FISTULA
     Dosage: 10 ?G, 1X/DAY FOR 1 WEEK FIRST THING IN THE MORNING
     Route: 067
     Dates: start: 20190412, end: 20190418

REACTIONS (5)
  - Gastrooesophageal reflux disease [Not Recovered/Not Resolved]
  - Off label use [Not Recovered/Not Resolved]
  - Intentional product misuse [Not Recovered/Not Resolved]
  - Headache [Not Recovered/Not Resolved]
  - Feeling abnormal [Not Recovered/Not Resolved]

NARRATIVE: CASE EVENT DATE: 201904
